FAERS Safety Report 16113153 (Version 2)
Quarter: 2019Q4

REPORT INFORMATION
  Report Type: Spontaneous
  Country: CA (occurrence: CA)
  Receive Date: 20190325
  Receipt Date: 20191107
  Transmission Date: 20200122
  Serious: Yes (Other)
  Sender: FDA-Public Use
  Company Number: CA-PFIZER INC-2019121168

PATIENT
  Age: 53 Year
  Sex: Female
  Weight: 85 kg

DRUGS (7)
  1. RESTORIL [CHLORMEZANONE] [Concomitant]
     Active Substance: CHLORMEZANONE
     Dosage: 15 MG, AT BEDTIME AS NEEDED
  2. PROMETRIUM [Concomitant]
     Active Substance: PROGESTERONE
     Dosage: 100 MG, DAILY
  3. ZOLOFT [Suspect]
     Active Substance: SERTRALINE HYDROCHLORIDE
     Indication: ELECTROCARDIOGRAM QT PROLONGED
     Dosage: 50 MG, 1X/DAY
     Route: 048
     Dates: start: 20130110, end: 20130206
  4. ESTROGEL [Concomitant]
     Active Substance: ESTRADIOL
     Dosage: 1 SPRAY DAILY
  5. OLMETEC [Concomitant]
     Active Substance: OLMESARTAN MEDOXOMIL
     Indication: HYPERTENSION
     Dosage: 20 MG, DAILY
  6. CALCIUM [Concomitant]
     Active Substance: CALCIUM
     Dosage: 500 MG, 2X/DAY
  7. D-TABS [Concomitant]
     Active Substance: CHOLECALCIFEROL
     Dosage: 1000 WEEKLY

REACTIONS (5)
  - Off label use [Recovered/Resolved]
  - Palpitations [Recovered/Resolved]
  - Arrhythmia [Recovered/Resolved]
  - Drug ineffective for unapproved indication [Recovered/Resolved]
  - Bradycardia [Recovered/Resolved]

NARRATIVE: CASE EVENT DATE: 20130130
